FAERS Safety Report 12732655 (Version 2)
Quarter: 2016Q4

REPORT INFORMATION
  Report Type: Spontaneous
  Country: US (occurrence: US)
  Receive Date: 20160912
  Receipt Date: 20161119
  Transmission Date: 20170207
  Serious: Yes (Death)
  Sender: FDA-Public Use
  Company Number: US-AKORN PHARMACEUTICALS-2016AKN00590

PATIENT
  Age: 45 Year
  Sex: Female

DRUGS (10)
  1. MYORISAN [Suspect]
     Active Substance: ISOTRETINOIN
     Indication: OLIGODENDROGLIOMA
     Dosage: UNK UNK, 2X/DAY
     Route: 048
     Dates: start: 20160526, end: 2016
  2. ZYRTEC [Concomitant]
     Active Substance: CETIRIZINE HYDROCHLORIDE
     Dosage: 10 MG, 1X/DAY
  3. FERROUS SULFATE. [Concomitant]
     Active Substance: FERROUS SULFATE
     Dosage: 325 MG, EVERY 48 HOURS
  4. ATIVAN [Concomitant]
     Active Substance: LORAZEPAM
     Indication: ANXIETY
     Dosage: 1 MG, AS NEEDED
  5. KEPPRA [Concomitant]
     Active Substance: LEVETIRACETAM
     Dosage: 1500 MG, 2X/DAY
  6. MYORISAN [Suspect]
     Active Substance: ISOTRETINOIN
     Indication: OLIGODENDROGLIOMA
     Dosage: UNK UNK, 2X/DAY
     Route: 048
     Dates: start: 20160526, end: 2016
  7. SENOKOT [Concomitant]
     Active Substance: SENNOSIDES
     Dosage: 1 TABLETS, 1X/DAY
  8. ATIVAN [Concomitant]
     Active Substance: LORAZEPAM
     Indication: SEIZURE
  9. AVASTIN [Concomitant]
     Active Substance: BEVACIZUMAB
  10. FOLATE [Concomitant]
     Active Substance: FOLATE SODIUM
     Dosage: 1 MG, 1X/DAY

REACTIONS (2)
  - Off label use [Not Recovered/Not Resolved]
  - Oligodendroglioma [Fatal]

NARRATIVE: CASE EVENT DATE: 20160526
